FAERS Safety Report 4725745-5 (Version None)
Quarter: 2005Q3

REPORT INFORMATION
  Report Type: 
  Country: None (occurrence: None)
  Receive Date: 20050722
  Receipt Date: 20050722
  Transmission Date: 20060218
  Serious: Yes (Life-Threatening, Hospitalization)
  Sender: FDA-Public Use
  Company Number: None

PATIENT
  Sex: Female
  Weight: 64.6 kg

DRUGS (2)
  1. HALDOL DECANOATE 100MG/ML [Suspect]
     Indication: SCHIZOPHRENIA
     Dosage: MONTHLY INTRAMUSCULAR
     Route: 030
     Dates: start: 20000120, end: 20040717
  2. ZYPREXA [Concomitant]

REACTIONS (4)
  - FALL [None]
  - HYPONATRAEMIA [None]
  - LOSS OF CONSCIOUSNESS [None]
  - POLYDIPSIA [None]
